FAERS Safety Report 23127377 (Version 1)
Quarter: 2023Q4

REPORT INFORMATION
  Report Type: Spontaneous
  Country: US (occurrence: US)
  Receive Date: 20231031
  Receipt Date: 20231031
  Transmission Date: 20240110
  Serious: No
  Sender: FDA-Public Use
  Company Number: US-AUROBINDO-AUR-APL-2023-001779

PATIENT
  Age: 65 Year
  Sex: Male
  Weight: 73 kg

DRUGS (2)
  1. ESCITALOPRAM OXALATE [Suspect]
     Active Substance: ESCITALOPRAM OXALATE
     Indication: Panic attack
     Dosage: UNK (1/4 PART OF 5MG PER DAY )
     Route: 065
     Dates: start: 20230104, end: 20230106
  2. ESCITALOPRAM OXALATE [Suspect]
     Active Substance: ESCITALOPRAM OXALATE
     Indication: Depression

REACTIONS (7)
  - Hyperhidrosis [Unknown]
  - Dry mouth [Unknown]
  - Constipation [Unknown]
  - Headache [Unknown]
  - Emotional disorder [Unknown]
  - Wrong technique in product usage process [Unknown]
  - Product substitution issue [Unknown]

NARRATIVE: CASE EVENT DATE: 20230105
